FAERS Safety Report 8234204-7 (Version None)
Quarter: 2012Q1

REPORT INFORMATION
  Report Type: 
  Country: None (occurrence: None)
  Receive Date: 20120326
  Receipt Date: 20120316
  Transmission Date: 20120608
  Serious: Yes (Hospitalization)
  Sender: FDA-Public Use
  Company Number: IT-MILLENNIUM PHARMACEUTICALS, INC.-2012-01122

PATIENT

DRUGS (4)
  1. BETA BLOCKING AGENTS [Concomitant]
  2. VELCADE [Suspect]
     Indication: MULTIPLE MYELOMA
     Dosage: 2 MG, UNK
     Route: 042
     Dates: start: 20120130, end: 20120203
  3. AMIODARONE HYDROCHLORIDE [Concomitant]
  4. DEXAMETHASONE [Concomitant]

REACTIONS (3)
  - HEART RATE INCREASED [None]
  - ATRIAL FIBRILLATION [None]
  - HYPOTENSION [None]
